FAERS Safety Report 5702603-0 (Version None)
Quarter: 2008Q2

REPORT INFORMATION
  Report Type: 
  Country: None (occurrence: None)
  Receive Date: 20080411
  Receipt Date: 20080408
  Transmission Date: 20081010
  Serious: Yes (Other)
  Sender: FDA-Public Use
  Company Number: US-JNJFOC-20080400413

PATIENT
  Sex: Female
  Weight: 68.04 kg

DRUGS (7)
  1. TRAMADOL HCL [Suspect]
     Indication: PAIN
     Route: 048
  2. CELEBREX [Suspect]
     Indication: INFLAMMATION
     Route: 065
  3. CELEBREX [Suspect]
     Indication: PAIN
     Route: 065
  4. ALL OTHER THERAPEUTIC PRODUCTS [Suspect]
     Indication: PAIN
     Route: 065
  5. VERAPAMIL [Concomitant]
     Route: 065
  6. ESTROGENS [Concomitant]
     Route: 065
  7. ALLERGY MEDICATION [Concomitant]
     Route: 065

REACTIONS (10)
  - ABASIA [None]
  - ABDOMINAL PAIN UPPER [None]
  - ANOREXIA [None]
  - ASTHENIA [None]
  - CONSTIPATION [None]
  - JOINT SWELLING [None]
  - OEDEMA PERIPHERAL [None]
  - RENAL PAIN [None]
  - VOMITING [None]
  - WEIGHT INCREASED [None]
